FAERS Safety Report 7624103-3 (Version None)
Quarter: 2011Q3

REPORT INFORMATION
  Report Type: 
  Country: None (occurrence: None)
  Receive Date: 20110720
  Receipt Date: 20110713
  Transmission Date: 20111222
  Serious: Yes (Death)
  Sender: FDA-Public Use
  Company Number: US-NOVOPROD-331773

PATIENT
  Age: 86 Year
  Sex: Female

DRUGS (2)
  1. IMMUNE GLOBULIN NOS [Suspect]
     Indication: ACQUIRED HAEMOPHILIA
     Dosage: UNK
     Route: 042
     Dates: start: 20110101, end: 20110101
  2. NOVOSEVEN RT [Suspect]
     Indication: ACQUIRED HAEMOPHILIA
     Dosage: UNK
     Dates: start: 20110101, end: 20110101

REACTIONS (1)
  - RENAL FAILURE [None]
